FAERS Safety Report 9226804 (Version 1)
Quarter: 2013Q2

REPORT INFORMATION
  Report Type: Spontaneous
  Country: US (occurrence: None)
  Receive Date: 20130410
  Receipt Date: 20130410
  Transmission Date: 20140414
  Serious: Yes (Hospitalization)
  Sender: FDA-Public Use
  Company Number: None

PATIENT
  Age: 64 Year
  Sex: Female
  Weight: 147 kg

DRUGS (16)
  1. VANCOMYCIN [Suspect]
     Indication: ANTIBIOTIC THERAPY
     Dosage: 1000MG ONCE-OC OR IVPB
  2. SL NTG [Concomitant]
  3. PROAIR [Concomitant]
  4. FLUTICASONE [Concomitant]
  5. NOVOLIN [Concomitant]
  6. WELLBUTRIN [Concomitant]
  7. ASA [Concomitant]
  8. COUMADIN [Concomitant]
  9. KCL [Concomitant]
  10. METFORMIN [Concomitant]
  11. BUMEX [Concomitant]
  12. PRAVACHOL [Concomitant]
  13. GLUCOTROL [Concomitant]
  14. COZAAR [Concomitant]
  15. DILAUDID [Concomitant]
  16. INSULIN HUMALOG [Concomitant]

REACTIONS (5)
  - Hypoxia [None]
  - Hyperhidrosis [None]
  - Nausea [None]
  - Vomiting [None]
  - Drug hypersensitivity [None]
